FAERS Safety Report 9929079 (Version 1)
Quarter: 2014Q1

REPORT INFORMATION
  Report Type: Spontaneous
  Country: JP (occurrence: None)
  Receive Date: 20140225
  Receipt Date: 20140225
  Transmission Date: 20141002
  Serious: Yes (Other)
  Sender: FDA-Public Use
  Company Number: JP-ALKEM-000500

PATIENT
  Age: 38 Year
  Sex: Female

DRUGS (2)
  1. HYDRALAZINE [Suspect]
     Indication: PRE-ECLAMPSIA
  2. MAGNESIUM SULPHATE [Suspect]
     Indication: PRE-ECLAMPSIA

REACTIONS (2)
  - Umbilical cord vascular disorder [None]
  - Maternal exposure during pregnancy [None]
